FAERS Safety Report 14956612 (Version 1)
Quarter: 2018Q2

REPORT INFORMATION
  Report Type: Spontaneous
  Country: US (occurrence: US)
  Receive Date: 20180531
  Receipt Date: 20180531
  Transmission Date: 20180711
  Serious: No
  Sender: FDA-Public Use
  Company Number: US-NOVEN PHARMACEUTICALS, INC.-US2017001048

PATIENT

DRUGS (3)
  1. GUANFACINE. [Concomitant]
     Active Substance: GUANFACINE
     Indication: TIC
     Dosage: 4 MG, QD
  2. DAYTRANA [Suspect]
     Active Substance: METHYLPHENIDATE
     Indication: ATTENTION DEFICIT/HYPERACTIVITY DISORDER
     Dosage: 30 MG, UNKNOWN
     Route: 062
     Dates: start: 2016
  3. GUANFACINE. [Concomitant]
     Active Substance: GUANFACINE
     Indication: ANXIETY

REACTIONS (6)
  - Product adhesion issue [Unknown]
  - Feeling hot [Unknown]
  - Disturbance in attention [Unknown]
  - Abnormal behaviour [Not Recovered/Not Resolved]
  - Drug prescribing error [Unknown]
  - Drug ineffective [Unknown]
